FAERS Safety Report 8080384-6 (Version None)
Quarter: 2012Q1

REPORT INFORMATION
  Report Type: 
  Country: None (occurrence: None)
  Receive Date: 20120130
  Receipt Date: 20120124
  Transmission Date: 20120608
  Serious: Yes (Death)
  Sender: FDA-Public Use
  Company Number: FR-ASTELLAS-2011EU009536

PATIENT
  Sex: Female

DRUGS (15)
  1. MYCOPHENOLATE MOFETIL (CELLCEPT) [Suspect]
     Indication: TRANSPLANT REJECTION
     Dosage: 250 MG, BID
     Route: 048
     Dates: end: 20111014
  2. CALCIPARINE [Concomitant]
     Dosage: UNK
     Route: 065
  3. VALACYCLOVIR HYDROCHLORIDE [Concomitant]
     Dosage: UNK
     Route: 065
  4. PREDNISONE TAB [Suspect]
     Indication: TRANSPLANT REJECTION
     Dosage: 10 MG, UID/QD
     Route: 048
     Dates: start: 20110201
  5. EUPRESSYL [Concomitant]
     Dosage: UNK
     Route: 065
  6. LERCANIDIPINE [Concomitant]
     Dosage: UNK
     Route: 065
  7. PROGRAF [Suspect]
     Indication: RENAL TRANSPLANT
     Dosage: 3 MG, BID
     Route: 048
     Dates: end: 20111021
  8. ISRADIPINE [Concomitant]
     Dosage: UNK
     Route: 065
  9. CALCIDIA [Concomitant]
     Dosage: UNK
     Route: 065
  10. FERROUS SULFATE TAB [Concomitant]
     Dosage: UNK
     Route: 065
  11. TIORFAN [Concomitant]
     Dosage: UNK
     Route: 065
  12. LASIX [Concomitant]
     Dosage: UNK
     Route: 065
  13. ENALAPRIL MALEATE [Concomitant]
     Dosage: UNK
     Route: 065
  14. PANTOPRAZOLE [Concomitant]
     Dosage: UNK
     Route: 065
  15. NEBIVOLOL HCL [Concomitant]
     Dosage: UNK
     Route: 065

REACTIONS (1)
  - CRYPTOCOCCOSIS [None]
